FAERS Safety Report 9376261 (Version 6)
Quarter: 2013Q4

REPORT INFORMATION
  Report Type: Spontaneous
  Country: US (occurrence: US)
  Receive Date: 20130701
  Receipt Date: 20131008
  Transmission Date: 20140711
  Serious: Yes (Other)
  Sender: FDA-Public Use
  Company Number: US-AMGEN-USASP2013045492

PATIENT
  Age: 28 Year
  Sex: Female
  Weight: 68.03 kg

DRUGS (10)
  1. ENBREL [Suspect]
     Indication: ANKYLOSING SPONDYLITIS
     Dosage: 25 MG, Q2WK
     Route: 058
     Dates: start: 200107
  2. NOVOLOG [Concomitant]
     Indication: TYPE 1 DIABETES MELLITUS
     Dosage: UNK
     Route: 058
     Dates: start: 200306
  3. PNV [Concomitant]
     Indication: PREGNANCY
     Dosage: UNK UNK, QD
     Route: 048
     Dates: start: 201105
  4. PNV [Concomitant]
     Indication: BREAST FEEDING
  5. VITAMIN D3 [Concomitant]
     Indication: VITAMIN D DECREASED
     Dosage: 2000 UNIT, QD
     Route: 048
     Dates: start: 201301
  6. CALCIUM [Concomitant]
     Indication: PREGNANCY
     Dosage: 600 MG, QD
     Route: 048
     Dates: start: 201208
  7. CALCIUM [Concomitant]
     Indication: BREAST FEEDING
  8. PULMICORT [Concomitant]
     Indication: ASTHMA
     Dosage: UNK UNK, BID
     Dates: start: 201205
  9. SYNTHROID [Concomitant]
     Indication: HYPOTHYROIDISM
     Dosage: 25 MG, QD
     Route: 048
  10. CALCIUM +D                         /00944201/ [Concomitant]
     Dosage: UNK

REACTIONS (6)
  - Premature delivery [Recovered/Resolved]
  - Premature rupture of membranes [Recovered/Resolved]
  - Pyrexia [Unknown]
  - Vomiting [Unknown]
  - In vitro fertilisation [Recovered/Resolved]
  - Streptococcal infection [Unknown]
